FAERS Safety Report 9351544 (Version 2)
Quarter: 2013Q4

REPORT INFORMATION
  Report Type: Spontaneous
  Country: DE (occurrence: DE)
  Receive Date: 20130617
  Receipt Date: 20131104
  Transmission Date: 20140711
  Serious: Yes (Other)
  Sender: FDA-Public Use
  Company Number: PHHY2013DE061289

PATIENT
  Sex: Female

DRUGS (1)
  1. IMMUNOSPORIN [Suspect]
     Indication: POLYARTHRITIS
     Dosage: 50 MG, QD
     Route: 048
     Dates: start: 201303

REACTIONS (2)
  - Alveolitis [Not Recovered/Not Resolved]
  - Cough [Not Recovered/Not Resolved]
